FAERS Safety Report 12936508 (Version 1)
Quarter: 2016Q4

REPORT INFORMATION
  Report Type: Spontaneous
  Country: JP (occurrence: JP)
  Receive Date: 20161114
  Receipt Date: 20161114
  Transmission Date: 20170207
  Serious: Yes (Hospitalization, Other)
  Sender: FDA-Public Use
  Company Number: JP-BAYER-2016-212510

PATIENT
  Age: 35 Year
  Sex: Female

DRUGS (3)
  1. PREDNISOLONE. [Suspect]
     Active Substance: PREDNISOLONE
     Dosage: UNK
     Route: 048
  2. ACETYLSALICYLIC ACID({=100 MG) [Suspect]
     Active Substance: ASPIRIN
     Indication: ANTICOAGULANT THERAPY
     Dosage: UNK
     Route: 048
  3. HEPARIN [Interacting]
     Active Substance: HEPARIN SODIUM
     Indication: ANTICOAGULANT THERAPY
     Dosage: UNK

REACTIONS (8)
  - Threatened labour [None]
  - Labelled drug-drug interaction medication error [None]
  - Drug administration error [None]
  - Retroperitoneal haemorrhage [None]
  - Systemic lupus erythematosus [None]
  - Platelet count decreased [Recovered/Resolved]
  - Contraindicated product administered [Recovered/Resolved]
  - Maternal exposure during pregnancy [Recovered/Resolved]
